FAERS Safety Report 4430038-X (Version None)
Quarter: 2004Q3

REPORT INFORMATION
  Report Type: 
  Country: None (occurrence: None)
  Receive Date: 20040817
  Receipt Date: 20040809
  Transmission Date: 20050211
  Serious: Yes (Hospitalization)
  Sender: FDA-Public Use
  Company Number: TPA2004A00759

PATIENT
  Age: 68 Year
  Sex: Male
  Weight: 100.6985 kg

DRUGS (9)
  1. ACTOS [Suspect]
     Indication: DIABETES MELLITUS NON-INSULIN-DEPENDENT
     Dosage: 15 MG, 1 IN 1 D; PER ORAL (SEE IMAGE)
     Route: 048
     Dates: start: 20040101, end: 20040201
  2. ACTOS [Suspect]
     Indication: DIABETES MELLITUS NON-INSULIN-DEPENDENT
     Dosage: 15 MG, 1 IN 1 D; PER ORAL (SEE IMAGE)
     Route: 048
     Dates: start: 20040201, end: 20040301
  3. ACTOS [Suspect]
     Indication: DIABETES MELLITUS NON-INSULIN-DEPENDENT
     Dosage: 15 MG, 1 IN 1 D; PER ORAL (SEE IMAGE)
     Route: 048
     Dates: start: 20040301
  4. METFORMIN HCL [Concomitant]
  5. GLYBURIDE (GLIBENCLAMIDE) (5 MILLIGRAM) [Concomitant]
  6. ALTACE (RAMIPRIL) (5 MILLIGRAM) [Concomitant]
  7. LOPID (GEMFIBROZIL) (600 MILLIGRAM) [Concomitant]
  8. PROTONIX [Concomitant]
  9. RAMIPRIL (RAMIPRIL) (5 MILLIGRAM) [Concomitant]

REACTIONS (22)
  - ANAEMIA [None]
  - ASTHENIA [None]
  - ATRIAL FIBRILLATION [None]
  - BLOOD IRON DECREASED [None]
  - CHEST DISCOMFORT [None]
  - CHEST PAIN [None]
  - DIZZINESS [None]
  - DYSPNOEA [None]
  - DYSPNOEA EXERTIONAL [None]
  - FATIGUE [None]
  - GASTRIC DISORDER [None]
  - HEART RATE INCREASED [None]
  - HYPOKALAEMIA [None]
  - LEIOMYOMA [None]
  - MALAISE [None]
  - NAUSEA [None]
  - PALPITATIONS [None]
  - PHOTOPHOBIA [None]
  - SERUM FERRITIN DECREASED [None]
  - TEMPERATURE INTOLERANCE [None]
  - TRANSFERRIN SATURATION DECREASED [None]
  - TREATMENT NONCOMPLIANCE [None]
